FAERS Safety Report 21135351 (Version 1)
Quarter: 2022Q3

REPORT INFORMATION
  Report Type: Spontaneous
  Country: US (occurrence: US)
  Receive Date: 20220727
  Receipt Date: 20220727
  Transmission Date: 20221026
  Serious: Yes (Life-Threatening, Hospitalization, Other)
  Sender: FDA-Public Use
  Company Number: US-HORIZON THERAPEUTICS-HZN-2022-005481

PATIENT

DRUGS (4)
  1. RAYOS [Suspect]
     Active Substance: PREDNISONE
     Indication: Product used for unknown indication
     Dosage: 1ST DOSE
     Route: 065
  2. RAYOS [Suspect]
     Active Substance: PREDNISONE
     Dosage: TAPER
     Route: 065
     Dates: start: 2022
  3. AMOXICILLIN\CLAVULANATE POTASSIUM [Concomitant]
     Active Substance: AMOXICILLIN\CLAVULANATE POTASSIUM
     Indication: Product used for unknown indication
     Dosage: UNK
     Dates: start: 2022, end: 2022
  4. DEXAMETHASONE [Concomitant]
     Active Substance: DEXAMETHASONE
     Dosage: UNK
     Dates: start: 2022

REACTIONS (7)
  - Nocardiosis [Unknown]
  - Intracranial infection [Unknown]
  - Bronchopulmonary aspergillosis [Unknown]
  - Aneurysm ruptured [Unknown]
  - Haemorrhage [Unknown]
  - Dependence on respirator [Unknown]
  - Respiratory failure [Unknown]

NARRATIVE: CASE EVENT DATE: 20220101
